FAERS Safety Report 20816575 (Version 1)
Quarter: 2022Q2

REPORT INFORMATION
  Report Type: Spontaneous
  Country: AU (occurrence: AU)
  Receive Date: 20220512
  Receipt Date: 20220512
  Transmission Date: 20220721
  Serious: Yes (Other)
  Sender: FDA-Public Use
  Company Number: AU-SAMSUNG BIOEPIS-SB-2022-11148

PATIENT
  Age: 44 Year
  Sex: Female

DRUGS (2)
  1. ADALIMUMAB [Suspect]
     Active Substance: ADALIMUMAB
     Indication: Peripheral spondyloarthritis
     Dosage: UNKNOWN
     Route: 065
  2. GOLIMUMAB [Suspect]
     Active Substance: GOLIMUMAB
     Indication: Peripheral spondyloarthritis
     Dosage: UNKNOWN
     Route: 065

REACTIONS (2)
  - Chronic pigmented purpura [Recovered/Resolved]
  - Off label use [Unknown]
